FAERS Safety Report 9933475 (Version 2)
Quarter: 2014Q1

REPORT INFORMATION
  Report Type: Report from Study
  Country: US (occurrence: US)
  Receive Date: 20140228
  Receipt Date: 20140228
  Transmission Date: 20141002
  Serious: No
  Sender: FDA-Public Use
  Company Number: US-MYLANLABS-2013S1009432

PATIENT
  Sex: Female
  Weight: 90.72 kg

DRUGS (2)
  1. AMNESTEEM CAPSULES [Suspect]
     Indication: HIDRADENITIS
     Dates: start: 20130107, end: 20130308
  2. AMNESTEEM CAPSULES [Suspect]
     Indication: OFF LABEL USE
     Dates: start: 20130107, end: 20130308

REACTIONS (4)
  - Malaise [Recovered/Resolved]
  - Headache [Recovered/Resolved]
  - Mood swings [Recovered/Resolved]
  - Nausea [Recovered/Resolved]
